FAERS Safety Report 25707000 (Version 1)
Quarter: 2025Q3

REPORT INFORMATION
  Report Type: Spontaneous
  Country: CN (occurrence: CN)
  Receive Date: 20250820
  Receipt Date: 20250820
  Transmission Date: 20251020
  Serious: Yes (Other)
  Sender: PFIZER
  Company Number: CN-PFIZER INC-PV202500099362

PATIENT
  Age: 32 Year
  Sex: Female
  Weight: 62.8 kg

DRUGS (3)
  1. CYTARABINE [Suspect]
     Active Substance: CYTARABINE
     Indication: Acute myeloid leukaemia
     Dosage: 0.16 G, 1X/DAY
     Route: 041
     Dates: start: 20250714, end: 20250715
  2. IDARUBICIN HYDROCHLORIDE [Concomitant]
     Active Substance: IDARUBICIN HYDROCHLORIDE
     Indication: Acute myeloid leukaemia
     Dosage: 10 MG, 1X/DAY
     Route: 041
     Dates: start: 20250714, end: 20250715
  3. IDARUBICIN HYDROCHLORIDE [Concomitant]
     Active Substance: IDARUBICIN HYDROCHLORIDE
     Dosage: 5 MG, 1X/DAY
     Route: 041
     Dates: start: 20250714, end: 20250715

REACTIONS (6)
  - Nausea [Recovering/Resolving]
  - Vomiting [Recovering/Resolving]
  - Dysphagia [Recovering/Resolving]
  - Abdominal discomfort [Recovering/Resolving]
  - Pyrexia [Recovered/Resolved]
  - Febrile infection [Recovering/Resolving]

NARRATIVE: CASE EVENT DATE: 20250714
